FAERS Safety Report 17023450 (Version 9)
Quarter: 2019Q4

REPORT INFORMATION
  Report Type: Report from Study
  Country: JP (occurrence: JP)
  Receive Date: 20191112
  Receipt Date: 20191220
  Transmission Date: 20200122
  Serious: Yes (Hospitalization)
  Sender: FDA-Public Use
  Company Number: JP-EISAI MEDICAL RESEARCH-EC-2019-065144

PATIENT
  Age: 77 Year
  Sex: Male
  Weight: 50.2 kg

DRUGS (9)
  1. LENVATINIB [Suspect]
     Active Substance: LENVATINIB
     Dosage: FLUCTUATED DOSAGE
     Route: 048
     Dates: start: 20191115
  2. PEMBROLIZUMAB. [Suspect]
     Active Substance: PEMBROLIZUMAB
     Indication: TRANSITIONAL CELL CARCINOMA
     Route: 041
     Dates: start: 20191025, end: 20191025
  3. CANDESARTAN. [Concomitant]
     Active Substance: CANDESARTAN
     Dates: start: 201808, end: 20191028
  4. CANDESARTAN. [Concomitant]
     Active Substance: CANDESARTAN
     Dates: start: 20191029
  5. LOXOPROFEN SODIUM [Concomitant]
     Active Substance: LOXOPROFEN SODIUM
     Dates: start: 20191026, end: 20191026
  6. NIFEDIPINE. [Concomitant]
     Active Substance: NIFEDIPINE
     Dates: start: 20191026, end: 20191028
  7. LENVATINIB [Suspect]
     Active Substance: LENVATINIB
     Indication: TRANSITIONAL CELL CARCINOMA
     Route: 048
     Dates: start: 20191025, end: 20191107
  8. PEMBROLIZUMAB. [Suspect]
     Active Substance: PEMBROLIZUMAB
     Route: 041
     Dates: start: 20191115
  9. AMLODIN OD [Concomitant]
     Active Substance: AMLODIPINE BESYLATE
     Dates: start: 20191029

REACTIONS (1)
  - Platelet count decreased [Recovered/Resolved]

NARRATIVE: CASE EVENT DATE: 20191108
